FAERS Safety Report 8580882 (Version 2)
Quarter: 2012Q4

REPORT INFORMATION
  Report Type: 
  Country: US (occurrence: US)
  Receive Date: 20120525
  Receipt Date: 20120828
  Transmission Date: 20130627
  Serious: Yes (Other)
  Sender: FDA-Public Use
  Company Number: PHEH2012US007939

PATIENT
  Age: 5 Year
  Sex: Female
  Weight: 19 kg

DRUGS (2)
  1. AFINITOR [Suspect]
     Indication: ASTROCYTOMA, LOW GRADE
     Dosage: 2.5 mg, daily
     Route: 048
     Dates: start: 20120309
  2. KEPPRA [Concomitant]
     Indication: EPILEPSY
     Dosage: 500 mg, QD
     Route: 048
     Dates: start: 20120305

REACTIONS (11)
  - Grand mal convulsion [Recovered/Resolved]
  - Loss of consciousness [Recovered/Resolved]
  - Convulsion [Recovered/Resolved]
  - Muscle rigidity [Recovered/Resolved]
  - Myoclonus [Recovered/Resolved]
  - Tremor [Not Recovered/Not Resolved]
  - Staring [Not Recovered/Not Resolved]
  - Psychomotor hyperactivity [Not Recovered/Not Resolved]
  - Abnormal behaviour [Not Recovered/Not Resolved]
  - Complex partial seizures [Unknown]
  - Stomatitis [Recovered/Resolved]
